FAERS Safety Report 8188177-6 (Version None)
Quarter: 2012Q1

REPORT INFORMATION
  Report Type: 
  Country: None (occurrence: None)
  Receive Date: 20120306
  Receipt Date: 20120229
  Transmission Date: 20120608
  Serious: Yes (Hospitalization, Other)
  Sender: FDA-Public Use
  Company Number: JP-PFIZER INC-2012028169

PATIENT
  Age: 76 Year
  Sex: Female
  Weight: 70 kg

DRUGS (13)
  1. MYONAL [Concomitant]
     Indication: BACK PAIN
     Dosage: 50 MG, 2X/DAY
     Route: 048
  2. ALOGLIPTIN BENZOATE [Concomitant]
     Indication: TYPE 2 DIABETES MELLITUS
     Dosage: 12.5 MG, 1X/DAY
     Route: 048
     Dates: start: 20111207
  3. DIAZEPAM [Concomitant]
     Indication: NEUROSIS
     Dosage: 5 MG, 1X/DAY
     Route: 048
  4. LYRICA [Suspect]
     Dosage: 100 MG, 1X/DAY
     Route: 048
     Dates: start: 20110105, end: 20110421
  5. PREDNISOLONE [Concomitant]
     Indication: RHEUMATOID ARTHRITIS
     Dosage: 2 MG, 2X/DAY
     Route: 048
  6. FOLIC ACID [Concomitant]
     Indication: FOLATE DEFICIENCY
     Dosage: 5 MG, 1X/DAY
     Route: 048
     Dates: start: 20111202
  7. ASPARA K [Concomitant]
     Indication: HYPOKALAEMIA
     Dosage: 600 MG, 2X/DAY
     Route: 048
     Dates: start: 20120123
  8. UNIPHYL [Suspect]
     Indication: ASTHMA
     Dosage: 100 MG, 1X/DAY
     Route: 048
  9. RABEPRAZOLE SODIUM [Suspect]
     Indication: GASTRIC ULCER
     Dosage: 10 MG, 1X/DAY
     Route: 048
  10. LYRICA [Suspect]
     Indication: NEUROPATHY PERIPHERAL
     Dosage: 75 MG, 1X/DAY
     Route: 048
     Dates: start: 20101229, end: 20110104
  11. IMIDAFENACIN [Suspect]
     Indication: POLLAKIURIA
     Dosage: 0.1 MG, 1X/DAY
     Route: 048
     Dates: start: 20111104, end: 20120202
  12. LYRICA [Suspect]
     Dosage: 225 MG, 1X/DAY
     Route: 048
     Dates: start: 20110422, end: 20120209
  13. URSO 250 [Suspect]
     Indication: HEPATITIS C
     Dosage: 100 MG, 3X/DAY
     Route: 048
     Dates: end: 20120216

REACTIONS (1)
  - JAUNDICE [None]
